FAERS Safety Report 16012334 (Version 1)
Quarter: 2019Q1

REPORT INFORMATION
  Report Type: Report from Study
  Country: AR (occurrence: AR)
  Receive Date: 20190227
  Receipt Date: 20190227
  Transmission Date: 20190418
  Serious: Yes (Other)
  Sender: FDA-Public Use
  Company Number: AR-ACTELION-A-CH2019-186747

PATIENT
  Age: 36 Year
  Sex: Female
  Weight: 63 kg

DRUGS (1)
  1. MIGLUSTAT CAPSULE 100 MG NPC ROW [Suspect]
     Active Substance: MIGLUSTAT
     Indication: NIEMANN-PICK DISEASE
     Dosage: 600 MG, QD
     Route: 048
     Dates: start: 201403

REACTIONS (1)
  - Gastric operation [Recovering/Resolving]

NARRATIVE: CASE EVENT DATE: 20190215
